FAERS Safety Report 24238193 (Version 1)
Quarter: 2024Q3

REPORT INFORMATION
  Report Type: Spontaneous
  Country: US (occurrence: US)
  Receive Date: 20240822
  Receipt Date: 20240822
  Transmission Date: 20241016
  Serious: Yes (Death, Other)
  Sender: AMGEN
  Company Number: US-AMGEN-USASP2024164564

PATIENT

DRUGS (8)
  1. FILGRASTIM [Suspect]
     Active Substance: FILGRASTIM
     Indication: Product used for unknown indication
     Dosage: 5 MICROGRAM/KILOGRAM, QD, DAYS 1-7
     Route: 065
  2. PEGFILGRASTIM [Suspect]
     Active Substance: PEGFILGRASTIM
     Indication: Product used for unknown indication
     Dosage: 6 MILLIGRAM,  AFTER DAY 5 TO REPLACE REMAINING INJECTIONS
     Route: 065
  3. VENETOCLAX [Concomitant]
     Active Substance: VENETOCLAX
     Dosage: 200 MILLIGRAM, QD, ON DAYS 1-21 OF INDUCTION
     Route: 048
  4. VENETOCLAX [Concomitant]
     Active Substance: VENETOCLAX
     Dosage: 400 MILLIGRAM
     Route: 048
  5. FLUDARABINE [Concomitant]
     Active Substance: FLUDARABINE PHOSPHATE
     Dosage: 30 MILLIGRAM/SQ. METER, DAYS 2-6,
     Route: 042
  6. CYTARABINE [Concomitant]
     Active Substance: CYTARABINE
     Dosage: 2 GRAM PER SQUARE METRE, DAYS 2-6
     Route: 042
  7. CYTARABINE [Concomitant]
     Active Substance: CYTARABINE
     Dosage: 1.5 GRAM PER SQUARE METRE
  8. IDARUBICIN [Concomitant]
     Active Substance: IDARUBICIN
     Dosage: 6 MILLIGRAM/SQ. METER, DAYS 4-6
     Route: 042

REACTIONS (1)
  - Death [Fatal]
